FAERS Safety Report 8014662-3 (Version None)
Quarter: 2011Q4

REPORT INFORMATION
  Report Type: 
  Country: None (occurrence: None)
  Receive Date: 20111229
  Receipt Date: 20111220
  Transmission Date: 20120403
  Serious: Yes (Hospitalization, Other)
  Sender: FDA-Public Use
  Company Number: BR-ABBOTT-10P-020-0683398-00

PATIENT
  Sex: Male
  Weight: 90 kg

DRUGS (5)
  1. AZATHIOPRINE [Suspect]
     Indication: PRODUCT USED FOR UNKNOWN INDICATION
     Dates: end: 20101029
  2. HUMIRA [Suspect]
     Indication: CROHN'S DISEASE
     Dosage: INDUCTION DOSE: 160MG
     Route: 030
  3. PREDNISOLONE [Concomitant]
     Indication: PRODUCT USED FOR UNKNOWN INDICATION
     Route: 048
  4. HUMIRA [Suspect]
     Dosage: INDUCTION DOSE 80MG
  5. HUMIRA [Suspect]
     Dates: end: 20101201

REACTIONS (18)
  - CROHN'S DISEASE [None]
  - ANAL INFLAMMATION [None]
  - FISTULA [None]
  - DYSURIA [None]
  - DRUG EFFECT DECREASED [None]
  - PYELOCALIECTASIS [None]
  - BLOOD UREA INCREASED [None]
  - BLOOD CREATININE INCREASED [None]
  - ANAEMIA [None]
  - NAUSEA [None]
  - C-REACTIVE PROTEIN INCREASED [None]
  - RENAL DISORDER [None]
  - DEVICE MALFUNCTION [None]
  - WHITE BLOOD CELL COUNT INCREASED [None]
  - VOMITING [None]
  - DEHYDRATION [None]
  - ABDOMINAL PAIN [None]
  - RENAL IMPAIRMENT [None]
